FAERS Safety Report 6067452-5 (Version None)
Quarter: 2009Q1

REPORT INFORMATION
  Report Type: 
  Country: None (occurrence: None)
  Receive Date: 20090205
  Receipt Date: 20090123
  Transmission Date: 20090719
  Serious: Yes (Other)
  Sender: FDA-Public Use
  Company Number: US-PFIZER INC-2009161686

PATIENT
  Sex: Female

DRUGS (3)
  1. XANAX [Suspect]
     Indication: SLEEP DISORDER
  2. LISINOPRIL [Suspect]
     Indication: HYPERTENSION
  3. SULAR [Suspect]
     Indication: HYPERTENSION

REACTIONS (1)
  - HYPERTENSION [None]
